FAERS Safety Report 10997459 (Version 1)
Quarter: 2015Q2

REPORT INFORMATION
  Report Type: Spontaneous
  Country: GB (occurrence: GB)
  Receive Date: 20150408
  Receipt Date: 20150408
  Transmission Date: 20150821
  Serious: Yes (Other)
  Sender: FDA-Public Use
  Company Number: GB-TEVA-552965ACC

PATIENT
  Age: 7 Year
  Sex: Male

DRUGS (1)
  1. ERYTHROMYCIN. [Suspect]
     Active Substance: ERYTHROMYCIN
     Indication: ACUTE TONSILLITIS
     Dosage: 1000 MILLIGRAM DAILY;
     Route: 048
     Dates: start: 20150320, end: 20150322

REACTIONS (3)
  - Pallor [Unknown]
  - Blood pressure increased [Unknown]
  - Arrhythmia [Recovered/Resolved]

NARRATIVE: CASE EVENT DATE: 20150322
